FAERS Safety Report 16125735 (Version 1)
Quarter: 2019Q1

REPORT INFORMATION
  Report Type: Spontaneous
  Country: PL (occurrence: PL)
  Receive Date: 20190328
  Receipt Date: 20190328
  Transmission Date: 20190418
  Serious: Yes (Hospitalization, Other)
  Sender: FDA-Public Use
  Company Number: PL-AUROBINDO-AUR-APL-2019-015736

PATIENT

DRUGS (1)
  1. AMOXICILLIN+CLAVULANIC ACID [Suspect]
     Active Substance: AMOXICILLIN\CLAVULANIC ACID
     Indication: EVIDENCE BASED TREATMENT
     Dosage: UNK
     Route: 065

REACTIONS (9)
  - Jaundice [Recovered/Resolved]
  - Anaemia [Recovered/Resolved]
  - Cyanosis [Recovered/Resolved]
  - Hyperglycaemia [Recovered/Resolved]
  - Decreased activity [Recovered/Resolved]
  - Poor weight gain neonatal [Recovered/Resolved]
  - Vomiting [Recovered/Resolved]
  - Apnoea [Recovered/Resolved]
  - Cough [Recovered/Resolved]
